FAERS Safety Report 15399286 (Version 4)
Quarter: 2019Q2

REPORT INFORMATION
  Report Type: Report from Study
  Country: PR (occurrence: US)
  Receive Date: 20180918
  Receipt Date: 20190626
  Transmission Date: 20190711
  Serious: Yes (Hospitalization, Other)
  Sender: FDA-Public Use
  Company Number: US-ACTELION-A-NJ2018-168971

PATIENT
  Age: 1 Year
  Sex: Male

DRUGS (7)
  1. CAPTOPRIL. [Concomitant]
     Active Substance: CAPTOPRIL
  2. LORATADINE. [Concomitant]
     Active Substance: LORATADINE
  3. POLYVISOL [Concomitant]
  4. REVATIO [Concomitant]
     Active Substance: SILDENAFIL CITRATE
  5. TRACLEER [Suspect]
     Active Substance: BOSENTAN
     Indication: PULMONARY ARTERIAL HYPERTENSION
     Dosage: 32 MG, BID
     Route: 048
     Dates: start: 20180214, end: 20190509
  6. TRACLEER [Suspect]
     Active Substance: BOSENTAN
     Dosage: 16 MG, BID
     Route: 048
     Dates: start: 20171211, end: 20180314
  7. LASIX [Concomitant]
     Active Substance: FUROSEMIDE

REACTIONS (13)
  - Transfusion [Recovering/Resolving]
  - Teething [Unknown]
  - Haematoma [Unknown]
  - Ventricular septal defect [Not Recovered/Not Resolved]
  - Anaemia [Recovering/Resolving]
  - Haemoglobin decreased [Recovering/Resolving]
  - Pyrexia [Recovered/Resolved]
  - Haematemesis [Recovering/Resolving]
  - Tremor [Recovered/Resolved]
  - Epistaxis [Recovering/Resolving]
  - Cardiac disorder [Unknown]
  - Haemorrhage [Recovered/Resolved]
  - Decreased appetite [Not Recovered/Not Resolved]

NARRATIVE: CASE EVENT DATE: 20180306
